FAERS Safety Report 21552579 (Version 1)
Quarter: 2022Q4

REPORT INFORMATION
  Report Type: Report from Study
  Country: US (occurrence: None)
  Receive Date: 20221104
  Receipt Date: 20221104
  Transmission Date: 20230113
  Serious: Yes (Hospitalization)
  Sender: FDA-Public Use
  Company Number: 2022A363091

PATIENT
  Sex: Female

DRUGS (17)
  1. FASENRA [Suspect]
     Active Substance: BENRALIZUMAB
     Indication: Asthma
     Dosage: 30MG/ML
     Route: 058
     Dates: start: 20221021
  2. PRILOSEC OTC [Suspect]
     Active Substance: OMEPRAZOLE MAGNESIUM
     Dosage: TBE 20M
     Route: 048
  3. ALBUTEROL SU NEB [Concomitant]
     Dosage: 0.63 MG/3
     Route: 065
  4. ALLEGRA ALLE [Concomitant]
     Route: 065
  5. ASPIRIN ADUL [Concomitant]
     Route: 065
  6. AZITHROMYCIN [Concomitant]
     Active Substance: AZITHROMYCIN
     Route: 065
  7. CYCLOBENZAPRINE [Concomitant]
     Active Substance: CYCLOBENZAPRINE
     Route: 065
  8. EPINEPHRINE [Concomitant]
     Active Substance: EPINEPHRINE
     Dosage: SOA 0.3MG/O.3
     Route: 065
  9. FISH OIL [Concomitant]
     Active Substance: FISH OIL
     Route: 065
  10. FLONASE SUS [Concomitant]
     Dosage: 5O MCG/ACT
     Route: 065
  11. FUROSEMIDE [Concomitant]
     Active Substance: FUROSEMIDE
     Route: 065
  12. PREDNISONE [Concomitant]
     Active Substance: PREDNISONE
     Route: 065
  13. SYNTHROID [Concomitant]
     Active Substance: LEVOTHYROXINE SODIUM
     Route: 065
  14. VITAMIN B12 [Concomitant]
     Active Substance: CYANOCOBALAMIN
     Route: 065
  15. VITAMIN D2 [Concomitant]
     Active Substance: ERGOCALCIFEROL
     Dosage: 2000 UNIT
     Route: 065
  16. XANAX [Concomitant]
     Active Substance: ALPRAZOLAM
     Route: 065
  17. XOLAIR [Concomitant]
     Active Substance: OMALIZUMAB
     Dosage: BD PEN
     Route: 065

REACTIONS (2)
  - Limb discomfort [Unknown]
  - Product dose omission issue [Unknown]
